FAERS Safety Report 9012522 (Version 2)
Quarter: 2013Q1

REPORT INFORMATION
  Report Type: Spontaneous
  Country: GR (occurrence: GR)
  Receive Date: 20130114
  Receipt Date: 20130122
  Transmission Date: 20140127
  Serious: Yes (Other)
  Sender: FDA-Public Use
  Company Number: GR-PFIZER INC-2013012474

PATIENT
  Age: 26 Year
  Sex: Male

DRUGS (2)
  1. EFEXOR XR [Suspect]
     Indication: SCHIZOAFFECTIVE DISORDER
     Dosage: UNK
     Dates: start: 2012
  2. EFEXOR XR [Suspect]
     Dosage: 525 MG/DAY

REACTIONS (9)
  - Overdose [Unknown]
  - Vitamin B12 decreased [Unknown]
  - Blood folate decreased [Unknown]
  - Poverty of speech [Unknown]
  - Dysarthria [Unknown]
  - Myoclonus [Unknown]
  - Asthenia [Unknown]
  - Influenza [Recovered/Resolved]
  - Pyrexia [Unknown]
